FAERS Safety Report 5271617-X (Version None)
Quarter: 2007Q1

REPORT INFORMATION
  Report Type: 
  Country: None (occurrence: None)
  Receive Date: 20070321
  Receipt Date: 20070309
  Transmission Date: 20070707
  Serious: Yes (Hospitalization, Other)
  Sender: FDA-Public Use
  Company Number: IE-PFIZER INC-2007011021

PATIENT
  Age: 85 Year
  Sex: Female

DRUGS (1)
  1. PREGABALIN [Suspect]
     Indication: NEURALGIA
     Route: 048

REACTIONS (3)
  - COGNITIVE DISORDER [None]
  - CONFUSIONAL STATE [None]
  - HYPONATRAEMIA [None]
